FAERS Safety Report 6967595-5 (Version None)
Quarter: 2010Q3

REPORT INFORMATION
  Report Type: 
  Country: None (occurrence: None)
  Receive Date: 20100907
  Receipt Date: 20100825
  Transmission Date: 20110219
  Serious: Yes (Hospitalization)
  Sender: FDA-Public Use
  Company Number: NO-PFIZER INC-2010108054

PATIENT
  Age: 71 Year
  Sex: Female

DRUGS (6)
  1. CLINDAMYCIN PHOSPHATE [Suspect]
     Indication: ERYSIPELAS
     Dosage: UNK
     Route: 058
     Dates: start: 20091201
  2. LEVOTHYROXINE SODIUM [Concomitant]
     Dosage: 100 UG, 1X/DAY
  3. ZANTAC [Concomitant]
     Dosage: 150 MG, 2X/DAY
  4. COZAAR [Concomitant]
     Dosage: 50 MG, 1X/DAY
  5. DIGITOXIN [Concomitant]
     Dosage: 0.05 MG ONCE DAILY THREE TIMES A WEEK
  6. IMOVANE [Concomitant]
     Dosage: 7.5 MG, 1X/DAY

REACTIONS (5)
  - DIARRHOEA [None]
  - GENERAL PHYSICAL HEALTH DETERIORATION [None]
  - PRURITUS GENERALISED [None]
  - TUBULOINTERSTITIAL NEPHRITIS [None]
  - URTICARIA [None]
